FAERS Safety Report 17631253 (Version 6)
Quarter: 2020Q2

REPORT INFORMATION
  Report Type: Spontaneous
  Country: JP (occurrence: JP)
  Receive Date: 20200406
  Receipt Date: 20200603
  Transmission Date: 20200713
  Serious: Yes (Hospitalization)
  Sender: FDA-Public Use
  Company Number: JP-CELGENEUS-JPN-20200400191

PATIENT
  Age: 83 Year
  Sex: Female
  Weight: 61.2 kg

DRUGS (30)
  1. VIDAZA [Suspect]
     Active Substance: AZACITIDINE
     Indication: ACUTE MYELOID LEUKAEMIA
     Dosage: 75 MILLIGRAM/SQ. METER
     Route: 041
     Dates: start: 20180503, end: 20180920
  2. SODIUM GUALENATE HYDRATE [Concomitant]
     Active Substance: SODIUM GUALENATE MONOHYDRATE
     Indication: INFECTION PROPHYLAXIS
     Dosage: 4 PERCENT
     Route: 049
     Dates: start: 20181012
  3. NEVANAC [Concomitant]
     Active Substance: NEPAFENAC
     Indication: PROPHYLAXIS
  4. PACKED RED BLOOD CELLS [Concomitant]
     Active Substance: HUMAN RED BLOOD CELL
     Indication: PRODUCT USED FOR UNKNOWN INDICATION
     Dosage: 2 UNITS
     Route: 041
     Dates: start: 20180427, end: 20180427
  5. SOLITA-T1 [Concomitant]
     Dosage: 200 MILLILITER
     Route: 041
     Dates: start: 20200106, end: 20200106
  6. HIRUDOID [Concomitant]
     Active Substance: GLYCOSAMINOGLYCANS
     Indication: DRY SKIN
     Dosage: 6 PERCENT
     Route: 061
     Dates: start: 20181016
  7. OFLOXACIN. [Concomitant]
     Active Substance: OFLOXACIN
     Indication: SCLERITIS
     Dosage: .3 PERCENT
     Route: 061
     Dates: start: 20200305
  8. NEVANAC [Concomitant]
     Active Substance: NEPAFENAC
     Indication: SCLERITIS
     Dosage: .1 PERCENT
     Route: 031
     Dates: start: 20200109
  9. BETAMETHASONE. [Concomitant]
     Active Substance: BETAMETHASONE
     Indication: PROPHYLAXIS
  10. VIDAZA [Suspect]
     Active Substance: AZACITIDINE
     Dosage: 37.5 MILLIGRAM/SQ. METER
     Route: 058
     Dates: start: 20191028, end: 20191103
  11. SOLITA-T1 [Concomitant]
     Dosage: 200 MILLILITER
     Route: 041
     Dates: start: 20200108, end: 20200108
  12. NEW LECICARBON [Concomitant]
     Active Substance: SODIUM BICARBONATE\SODIUM PHOSPHATE, MONOBASIC
     Indication: CONSTIPATION
     Dosage: 2.6 GRAM
     Route: 054
     Dates: start: 20180512
  13. FEXOFENADINE [Concomitant]
     Active Substance: FEXOFENADINE HYDROCHLORIDE
     Indication: ECZEMA ASTEATOTIC
     Dosage: 120 MILLIGRAM
     Route: 048
     Dates: start: 20190615
  14. GATIFLO [Concomitant]
     Active Substance: GATIFLOXACIN
     Indication: SCLERITIS
  15. MAGNESIUM OXIDE. [Concomitant]
     Active Substance: MAGNESIUM OXIDE
     Indication: CONSTIPATION
     Dosage: 330 MILLIGRAM
     Route: 048
     Dates: start: 20180509
  16. PACKED RED BLOOD CELLS [Concomitant]
     Active Substance: HUMAN RED BLOOD CELL
     Dosage: 2 UNITS
     Route: 041
     Dates: start: 20180502, end: 20180502
  17. KETOPROFEN. [Concomitant]
     Active Substance: KETOPROFEN
     Indication: ARTHRITIS
     Dosage: 40 MILLIGRAM
     Route: 062
     Dates: start: 20180712
  18. FEBUXOSTAT. [Concomitant]
     Active Substance: FEBUXOSTAT
     Indication: PROPHYLAXIS
     Dosage: 60 MILLIGRAM
     Route: 048
     Dates: start: 20180502, end: 20180510
  19. SOLYUGEN F [Concomitant]
     Active Substance: CALCIUM CHLORIDE\POTASSIUM CHLORIDE\SODIUM ACETATE\SODIUM CHLORIDE
     Indication: ANGIOPATHY
     Dosage: 500 MILLIGRAM
     Route: 041
     Dates: start: 20200325, end: 20200325
  20. SOLITA-T1 [Concomitant]
     Indication: PROPHYLAXIS
     Dosage: 800 MILLILITER
     Route: 041
     Dates: start: 20180502, end: 20180509
  21. SENNOSIDE A+B [Concomitant]
     Active Substance: SENNOSIDES A AND B
     Indication: CONSTIPATION
     Dosage: 24 MILLIGRAM
     Route: 048
     Dates: start: 20180506
  22. ZOLPIDEM [Concomitant]
     Active Substance: ZOLPIDEM TARTRATE
     Indication: INSOMNIA
     Dosage: 5 MILLIGRAM
     Route: 054
     Dates: start: 20180522
  23. URSODEOXYCHOLIC ACID [Concomitant]
     Active Substance: URSODIOL
     Indication: PROPHYLAXIS
     Dosage: 600 MILLIGRAM
     Route: 048
     Dates: start: 20190717
  24. GATIFLO [Concomitant]
     Active Substance: GATIFLOXACIN
     Indication: PROPHYLAXIS
     Dosage: .3 PERCENT
     Route: 031
     Dates: start: 20200213
  25. VIDAZA [Suspect]
     Active Substance: AZACITIDINE
     Dosage: 75 MILLIGRAM/SQ. METER
     Route: 058
     Dates: start: 20181031, end: 20190724
  26. KETOPROFEN. [Concomitant]
     Active Substance: KETOPROFEN
     Indication: BACK PAIN
     Dosage: 40 MILLIGRAM
     Route: 062
     Dates: start: 20181007
  27. FLUCONAZOLE. [Concomitant]
     Active Substance: FLUCONAZOLE
     Indication: INFECTION PROPHYLAXIS
     Dosage: 100 MILLIGRAM
     Route: 048
     Dates: start: 20191223, end: 20200325
  28. BETAMETHASONE. [Concomitant]
     Active Substance: BETAMETHASONE
     Indication: SCLERITIS
     Dosage: .1 PERCENT
     Route: 031
     Dates: start: 20200213
  29. PLATELETS [Concomitant]
     Active Substance: HUMAN PLATELET, ALLOGENIC
     Indication: PRODUCT USED FOR UNKNOWN INDICATION
     Dosage: 10 UNITS
     Route: 041
     Dates: start: 20180427, end: 20180427
  30. PLATELETS [Concomitant]
     Active Substance: HUMAN PLATELET, ALLOGENIC
     Dosage: 10 UNITS
     Route: 041
     Dates: start: 20180501, end: 20180501

REACTIONS (2)
  - Femoral neck fracture [Not Recovered/Not Resolved]
  - Febrile neutropenia [Recovered/Resolved]

NARRATIVE: CASE EVENT DATE: 20200325
